FAERS Safety Report 7605755-0 (Version None)
Quarter: 2011Q3

REPORT INFORMATION
  Report Type: 
  Country: None (occurrence: None)
  Receive Date: 20110713
  Receipt Date: 20110706
  Transmission Date: 20111222
  Serious: No
  Sender: FDA-Public Use
  Company Number: US-JNJFOC-20110702740

PATIENT
  Age: 34 Year
  Sex: Female

DRUGS (1)
  1. INVEGA SUSTENNA [Suspect]
     Indication: PRODUCT USED FOR UNKNOWN INDICATION
     Dosage: THE DRUG WAS STOPPED ON AN UNSPECIFIED DATE IN 2011.
     Route: 030
     Dates: start: 20110301

REACTIONS (1)
  - BLOOD PROLACTIN INCREASED [None]
